FAERS Safety Report 6222842-2 (Version None)
Quarter: 2009Q2

REPORT INFORMATION
  Report Type: 
  Country: None (occurrence: None)
  Receive Date: 20090611
  Receipt Date: 20090604
  Transmission Date: 20091009
  Serious: Yes (Other)
  Sender: FDA-Public Use
  Company Number: B0575175A

PATIENT
  Sex: Male

DRUGS (3)
  1. ALBUTEROL [Suspect]
     Indication: ASTHMA
     Dosage: 100MCG THREE TIMES PER DAY
     Route: 055
     Dates: start: 20090321, end: 20090323
  2. SERETIDE DISKUS [Concomitant]
     Indication: ASTHMA
     Route: 055
  3. HYTACAND [Concomitant]
     Indication: HYPERTENSION
     Dosage: 1TAB PER DAY
     Route: 048
     Dates: start: 20080101

REACTIONS (1)
  - ASTHMATIC CRISIS [None]
